FAERS Safety Report 25476877 (Version 2)
Quarter: 2025Q3

REPORT INFORMATION
  Report Type: Spontaneous
  Country: TW (occurrence: TW)
  Receive Date: 20250625
  Receipt Date: 20250717
  Transmission Date: 20251021
  Serious: No
  Sender: ROCHE
  Company Number: TW-CHUGAI-2025017654

PATIENT
  Age: 5 Decade
  Sex: Female

DRUGS (3)
  1. ENSPRYNG [Suspect]
     Active Substance: SATRALIZUMAB-MWGE
     Indication: Product used for unknown indication
     Dosage: 120 MILLIGRAM, ONCE/MONTH
     Route: 058
     Dates: start: 202410, end: 202502
  2. ENSPRYNG [Suspect]
     Active Substance: SATRALIZUMAB-MWGE
     Dosage: 120 MILLIGRAM, ONCE/MONTH
     Route: 058
     Dates: start: 202503, end: 2025
  3. ENSPRYNG [Suspect]
     Active Substance: SATRALIZUMAB-MWGE
     Dosage: 120 MILLIGRAM, ONCE/MONTH
     Route: 058
     Dates: start: 202506

REACTIONS (2)
  - Hepatic enzyme increased [Recovered/Resolved]
  - Hepatic steatosis [Unknown]

NARRATIVE: CASE EVENT DATE: 20250201
